FAERS Safety Report 16069956 (Version 3)
Quarter: 2019Q3

REPORT INFORMATION
  Report Type: Report from Study
  Country: None (occurrence: BR)
  Receive Date: 20190314
  Receipt Date: 20190801
  Transmission Date: 20191004
  Serious: Yes (Death, Hospitalization, Other)
  Sender: FDA-Public Use
  Company Number: BR-ABBVIE-18K-020-2443476-00

PATIENT
  Age: 67 Year
  Sex: Male

DRUGS (6)
  1. PREDSIM [Concomitant]
     Active Substance: PREDNISOLONE
     Indication: RHEUMATOID ARTHRITIS
  2. LOSARTAN. [Concomitant]
     Active Substance: LOSARTAN
     Indication: HYPERTENSION
     Route: 048
     Dates: start: 2009
  3. HUMIRA [Suspect]
     Active Substance: ADALIMUMAB
     Indication: RHEUMATOID ARTHRITIS
     Route: 058
     Dates: start: 20171123
  4. AZOPT [Concomitant]
     Active Substance: BRINZOLAMIDE
     Indication: RHEUMATOID SCLERITIS
     Dosage: 1 DROP IN EACH EYE
     Route: 047
     Dates: start: 2017
  5. PREDNISONE. [Concomitant]
     Active Substance: PREDNISONE
     Indication: RHEUMATOID ARTHRITIS
     Route: 048
     Dates: start: 2017
  6. FLUTINOL [Concomitant]
     Indication: RHEUMATOID SCLERITIS
     Route: 047
     Dates: start: 2017

REACTIONS (16)
  - Dysgeusia [Not Recovered/Not Resolved]
  - Condition aggravated [Unknown]
  - Cholangitis [Unknown]
  - Hepatitis [Not Recovered/Not Resolved]
  - Choluria [Recovering/Resolving]
  - Drug-induced liver injury [Recovering/Resolving]
  - Hepatosplenomegaly [Unknown]
  - Jaundice [Recovering/Resolving]
  - Renal disorder [Not Recovered/Not Resolved]
  - Hepatitis [Recovered/Resolved]
  - Aptyalism [Recovering/Resolving]
  - Peripheral swelling [Not Recovered/Not Resolved]
  - Weight decreased [Not Recovered/Not Resolved]
  - Influenza [Recovered/Resolved]
  - Death [Fatal]
  - Abdominal distension [Recovering/Resolving]

NARRATIVE: CASE EVENT DATE: 20180727
